FAERS Safety Report 5296722-3 (Version None)
Quarter: 2007Q2

REPORT INFORMATION
  Report Type: 
  Country: None (occurrence: None)
  Receive Date: 20070413
  Receipt Date: 20070402
  Transmission Date: 20071010
  Serious: Yes (Hospitalization, Other)
  Sender: FDA-Public Use
  Company Number: BR-PFIZER INC-2007025473

PATIENT
  Age: 46 Year
  Sex: Female

DRUGS (3)
  1. VFEND [Suspect]
     Indication: FUNGAL SEPSIS
     Route: 042
     Dates: start: 20070301, end: 20070301
  2. MEROPENEM [Suspect]
  3. FLUCONAZOLE [Concomitant]
     Route: 065

REACTIONS (2)
  - PYREXIA [None]
  - RASH [None]
